FAERS Safety Report 19258450 (Version 2)
Quarter: 2021Q2

REPORT INFORMATION
  Report Type: Spontaneous
  Country: CN (occurrence: CN)
  Receive Date: 20210514
  Receipt Date: 20210526
  Transmission Date: 20210717
  Serious: Yes (Hospitalization)
  Sender: FDA-Public Use
  Company Number: CN-PFIZER INC-2021518096

PATIENT
  Age: 83 Year
  Sex: Male

DRUGS (13)
  1. MEDIUM AND LONG CHAIN FAT EMULSION INJECTION (C6?24) [Suspect]
     Active Substance: GLYCERIN\LECITHIN\MEDIUM-CHAIN TRIGLYCERIDES\SOYBEAN OIL
     Indication: NUTRITIONAL SUPPLEMENTATION
     Dosage: 250 ML, 1X/DAY
     Route: 041
     Dates: start: 20210329, end: 20210401
  2. PRADAXA [Concomitant]
     Active Substance: DABIGATRAN ETEXILATE MESYLATE
     Indication: ANTICOAGULANT THERAPY
     Dosage: 110 MG, 2X/DAY
     Route: 048
     Dates: start: 20210226, end: 20210419
  3. ATORVASTATIN CALCIUM. [Concomitant]
     Active Substance: ATORVASTATIN CALCIUM
     Indication: PROPHYLAXIS
  4. PANTOLOC [Concomitant]
     Active Substance: PANTOPRAZOLE SODIUM
     Indication: DYSPEPSIA
     Dosage: 40 MG, 1X/DAY
     Route: 048
     Dates: start: 20210326, end: 20210419
  5. MEPEM [Suspect]
     Active Substance: MEROPENEM
     Indication: PNEUMONIA
     Dosage: 1 G, 2X/DAY
     Route: 041
     Dates: start: 20210327, end: 20210401
  6. CORDARONE [Concomitant]
     Active Substance: AMIODARONE HYDROCHLORIDE
     Indication: HEART RATE ABNORMAL
     Dosage: 0.2 G, 1X/DAY
     Route: 048
     Dates: start: 20210329, end: 20210419
  7. HUMAN SERUM ALBUMIN [Suspect]
     Active Substance: ALBUMIN HUMAN
     Indication: NUTRITIONAL SUPPLEMENTATION
     Dosage: 10 G, 1X/DAY
     Route: 041
     Dates: start: 20210330, end: 20210403
  8. ATORVASTATIN CALCIUM. [Concomitant]
     Active Substance: ATORVASTATIN CALCIUM
     Indication: ARTERIAL STIFFNESS
     Dosage: 10 MG, 1X/DAY
     Route: 048
     Dates: start: 20210326, end: 20210419
  9. HYDROTALCITE [Concomitant]
     Active Substance: HYDROTALCITE
     Indication: PROPHYLAXIS
     Dosage: 0.5 G, 3X/DAY
     Route: 048
     Dates: start: 20210326, end: 20210419
  10. FINASTERIDE. [Concomitant]
     Active Substance: FINASTERIDE
     Indication: BENIGN PROSTATIC HYPERPLASIA
     Dosage: 5 MG, 1X/DAY
     Route: 048
     Dates: start: 20210326, end: 20210419
  11. ALUMINIUM CARBONATE/MAGNESIUM OXIDE [Concomitant]
     Indication: DYSPEPSIA
     Dosage: UNK
  12. METOPROLOL SUCCINATE. [Concomitant]
     Active Substance: METOPROLOL SUCCINATE
     Indication: HEART RATE INCREASED
     Dosage: 23.75 MG, 1X/DAY
     Route: 048
     Dates: start: 20210329, end: 20210419
  13. SHUN SHUANG AN [Concomitant]
     Indication: BENIGN PROSTATIC HYPERPLASIA
     Dosage: 0.2 MG, 1X/DAY
     Route: 048
     Dates: start: 20210326, end: 20210419

REACTIONS (1)
  - Mental disorder [Recovering/Resolving]

NARRATIVE: CASE EVENT DATE: 20210401
